FAERS Safety Report 6095423-1 (Version None)
Quarter: 2009Q1

REPORT INFORMATION
  Report Type: 
  Country: None (occurrence: None)
  Receive Date: 20090225
  Receipt Date: 20090225
  Transmission Date: 20090719
  Serious: Yes (Disabling)
  Sender: FDA-Public Use
  Company Number: None

PATIENT
  Age: 68 Year
  Sex: Female
  Weight: 61.2356 kg

DRUGS (1)
  1. LEVAQUIN [Suspect]

REACTIONS (4)
  - ABASIA [None]
  - BALANCE DISORDER [None]
  - TENDON RUPTURE [None]
  - UNEQUAL LIMB LENGTH [None]
